FAERS Safety Report 23155811 (Version 2)
Quarter: 2024Q1

REPORT INFORMATION
  Report Type: Spontaneous
  Country: US (occurrence: US)
  Receive Date: 20231107
  Receipt Date: 20240130
  Transmission Date: 20240410
  Serious: Yes (Hospitalization)
  Sender: FDA-Public Use
  Company Number: US-SA-SAC20231101001353

PATIENT
  Age: 70 Year
  Sex: Female
  Weight: 58 kg

DRUGS (24)
  1. DUPIXENT [Suspect]
     Active Substance: DUPILUMAB
     Indication: Dermatitis atopic
     Dosage: 300 MG, QOW
     Route: 058
     Dates: start: 202302, end: 2023
  2. DUPIXENT [Suspect]
     Active Substance: DUPILUMAB
     Indication: Pruritus
     Dosage: UNK
     Dates: start: 20231008
  3. LAMIVUDINE [Concomitant]
     Active Substance: LAMIVUDINE
  4. CYANOCOBALAMIN [Concomitant]
     Active Substance: CYANOCOBALAMIN
  5. MINOXIDIL [Concomitant]
     Active Substance: MINOXIDIL
  6. INFED [Concomitant]
     Active Substance: IRON DEXTRAN
  7. GABAPENTIN [Concomitant]
     Active Substance: GABAPENTIN
  8. GABAPENTIN [Concomitant]
     Active Substance: GABAPENTIN
  9. MOVANTIK [Concomitant]
     Active Substance: NALOXEGOL OXALATE
  10. MONTELUKAST SODIUM [Concomitant]
     Active Substance: MONTELUKAST SODIUM
  11. FAMOTIDINE [Concomitant]
     Active Substance: FAMOTIDINE
  12. CETIRIZINE HCL [Concomitant]
     Active Substance: CETIRIZINE HYDROCHLORIDE
  13. CETIRIZINE HCL [Concomitant]
     Active Substance: CETIRIZINE HYDROCHLORIDE
  14. AMLODIPINE BESYLATE [Concomitant]
     Active Substance: AMLODIPINE BESYLATE
  15. OXYCONTIN [Concomitant]
     Active Substance: OXYCODONE HYDROCHLORIDE
     Dosage: 20 MG, BID
  16. OXYCODONE HYDROCHLORIDE [Concomitant]
     Active Substance: OXYCODONE HYDROCHLORIDE
  17. DEXILANT [Concomitant]
     Active Substance: DEXLANSOPRAZOLE
     Dosage: UNK
  18. DEXILANT [Concomitant]
     Active Substance: DEXLANSOPRAZOLE
  19. SPIRONOLACTONE [Concomitant]
     Active Substance: SPIRONOLACTONE
  20. SPIRONOLACTONE [Concomitant]
     Active Substance: SPIRONOLACTONE
  21. DICYCLOMINE [Concomitant]
     Active Substance: DICYCLOMINE HYDROCHLORIDE
     Dosage: UNK
  22. MILK OF MAGNESIA [Concomitant]
     Active Substance: MAGNESIUM HYDROXIDE
     Dosage: UNK
  23. REMERON [Concomitant]
     Active Substance: MIRTAZAPINE
     Dosage: UNK
  24. SAVELLA [Concomitant]
     Active Substance: MILNACIPRAN HYDROCHLORIDE
     Dosage: UNK

REACTIONS (6)
  - Hospitalisation [Unknown]
  - Arthritis [Unknown]
  - Pain [Unknown]
  - Hand deformity [Unknown]
  - Pruritus [Unknown]
  - Drug ineffective for unapproved indication [Unknown]

NARRATIVE: CASE EVENT DATE: 20230101
